FAERS Safety Report 8423812-6 (Version None)
Quarter: 2012Q2

REPORT INFORMATION
  Report Type: 
  Country: None (occurrence: None)
  Receive Date: 20120608
  Receipt Date: 20120417
  Transmission Date: 20120825
  Serious: No
  Sender: FDA-Public Use
  Company Number: US-ASTRAZENECA-2005UW05455

PATIENT
  Age: 38 Year
  Sex: Female
  Weight: 47.6 kg

DRUGS (1)
  1. ATACAND [Suspect]
     Indication: MIGRAINE
     Route: 048
     Dates: start: 20030201

REACTIONS (5)
  - THERAPEUTIC RESPONSE UNEXPECTED [None]
  - ABDOMINAL PAIN [None]
  - NAUSEA [None]
  - VOMITING [None]
  - DIARRHOEA [None]
